FAERS Safety Report 25354678 (Version 1)
Quarter: 2025Q2

REPORT INFORMATION
  Report Type: Spontaneous
  Country: DE (occurrence: DE)
  Receive Date: 20250524
  Receipt Date: 20250524
  Transmission Date: 20250717
  Serious: Yes (Hospitalization)
  Sender: ACCORD
  Company Number: DE-MLMSERVICE-20250507-PI500072-00306-1

PATIENT
  Age: 60 Year
  Sex: Female

DRUGS (1)
  1. TACROLIMUS [Suspect]
     Active Substance: TACROLIMUS
     Indication: Immunosuppressant drug therapy
     Dates: start: 201506

REACTIONS (4)
  - Disseminated tuberculosis [Recovered/Resolved]
  - Tuberculosis gastrointestinal [Recovered/Resolved]
  - Bacterial colitis [Recovered/Resolved]
  - Mycobacterial infection [Recovered/Resolved]

NARRATIVE: CASE EVENT DATE: 20240101
